FAERS Safety Report 19278380 (Version 1)
Quarter: 2021Q2

REPORT INFORMATION
  Report Type: Spontaneous
  Country: US (occurrence: US)
  Receive Date: 20210520
  Receipt Date: 20210520
  Transmission Date: 20210717
  Serious: No
  Sender: FDA-Public Use
  Company Number: None

PATIENT
  Age: 8 Year
  Sex: Female

DRUGS (1)
  1. HUMATROPE [Suspect]
     Active Substance: SOMATROPIN
     Indication: HYPOTHALAMO-PITUITARY DISORDER
     Dosage: ?          OTHER FREQUENCY:6X PER WEEK;OTHER ROUTE:UNDER THE SKIN?
     Route: 058
     Dates: start: 202103

REACTIONS (4)
  - Product preparation error [None]
  - Product container seal issue [None]
  - Product dose omission issue [None]
  - Device leakage [None]

NARRATIVE: CASE EVENT DATE: 20210315
